FAERS Safety Report 6478838-9 (Version None)
Quarter: 2009Q4

REPORT INFORMATION
  Report Type: 
  Country: None (occurrence: None)
  Receive Date: 20091202
  Receipt Date: 20091117
  Transmission Date: 20100525
  Serious: Yes (Life-Threatening)
  Sender: FDA-Public Use
  Company Number: 2009278840

PATIENT
  Age: 89 Year
  Sex: Male
  Weight: 72 kg

DRUGS (1)
  1. FRAGMIN [Suspect]
     Indication: POSTOPERATIVE CARE
     Dosage: 5000,  SUBCUTANEOUS
     Route: 058
     Dates: start: 20090813, end: 20090823

REACTIONS (3)
  - HEPARIN-INDUCED THROMBOCYTOPENIA [None]
  - PULMONARY EMBOLISM [None]
  - SKIN REACTION [None]
